FAERS Safety Report 4486135-6 (Version None)
Quarter: 2004Q4

REPORT INFORMATION
  Report Type: 
  Country: None (occurrence: None)
  Receive Date: 20041026
  Receipt Date: 20041011
  Transmission Date: 20050328
  Serious: Yes (Life-Threatening, Hospitalization, Other)
  Sender: FDA-Public Use
  Company Number: US-MERCK-0410USA01680

PATIENT
  Age: 51 Year
  Sex: Female
  Weight: 70 kg

DRUGS (9)
  1. VIOXX [Suspect]
     Indication: HEADACHE
     Route: 048
     Dates: start: 20010930, end: 20040930
  2. IMITREX [Concomitant]
     Route: 065
     Dates: start: 20010901, end: 20031201
  3. INDERAL LA [Concomitant]
     Indication: HEADACHE
     Route: 048
     Dates: start: 20010901
  4. PREMARIN [Concomitant]
     Route: 065
  5. PREVACID [Concomitant]
     Route: 048
     Dates: start: 20011001
  6. LIPITOR [Concomitant]
     Route: 065
  7. TOPAMAX [Concomitant]
     Indication: HEADACHE
     Route: 048
     Dates: start: 20010901
  8. LEXAPRO [Concomitant]
     Indication: HEADACHE
     Route: 048
     Dates: start: 20031001
  9. PARAFON FORTE [Concomitant]
     Route: 065
     Dates: start: 20011001

REACTIONS (1)
  - MYOCARDIAL INFARCTION [None]
